FAERS Safety Report 20572706 (Version 4)
Quarter: 2022Q2

REPORT INFORMATION
  Report Type: Report from Study
  Country: AU (occurrence: AU)
  Receive Date: 20220309
  Receipt Date: 20220404
  Transmission Date: 20220720
  Serious: Yes (Hospitalization)
  Sender: FDA-Public Use
  Company Number: AU-PFM-2022-01621

PATIENT
  Age: 50 Year
  Sex: Male

DRUGS (17)
  1. ENCORAFENIB [Suspect]
     Active Substance: ENCORAFENIB
     Indication: Metastatic malignant melanoma
     Dosage: 450 MG, DAILY, CYCLE 2
     Route: 065
     Dates: start: 20211007, end: 20211128
  2. BINIMETINIB [Suspect]
     Active Substance: BINIMETINIB
     Indication: Metastatic malignant melanoma
     Dosage: 45 MG, BID (2/DAY), CYCLE 2
     Route: 065
     Dates: start: 20211007, end: 20211128
  3. PALBOCICLIB [Suspect]
     Active Substance: PALBOCICLIB
     Indication: Metastatic malignant melanoma
     Dosage: 100 MG, DAILY, CYCLE 2
     Route: 065
     Dates: start: 20211007, end: 20211124
  4. NALOXONE HYDROCHLORIDE\OXYCODONE HYDROCHLORIDE [Concomitant]
     Active Substance: NALOXONE HYDROCHLORIDE\OXYCODONE HYDROCHLORIDE
     Indication: Pain
     Dosage: 30/15 MG BD
     Route: 048
     Dates: start: 20211013, end: 20211026
  5. NALOXONE HYDROCHLORIDE\OXYCODONE HYDROCHLORIDE [Concomitant]
     Active Substance: NALOXONE HYDROCHLORIDE\OXYCODONE HYDROCHLORIDE
     Dosage: 40/20 MG BD
     Route: 048
     Dates: start: 20211027, end: 20211128
  6. OXYCODONE HYDROCHLORIDE [Concomitant]
     Active Substance: OXYCODONE HYDROCHLORIDE
     Indication: Pain
     Dosage: 10 MG, PRN
     Route: 048
     Dates: start: 20211007, end: 20211128
  7. LORAZEPAM [Concomitant]
     Active Substance: LORAZEPAM
     Indication: Anxiety
     Dosage: 0.5 MG, PRN
     Route: 048
     Dates: start: 20210211
  8. PREGABALIN [Concomitant]
     Active Substance: PREGABALIN
     Indication: Pain
     Dosage: 150 MG
     Route: 048
     Dates: start: 20210722, end: 20211101
  9. PREGABALIN [Concomitant]
     Active Substance: PREGABALIN
     Dosage: 300 MG, BID (2/DAY)
     Route: 048
     Dates: start: 20211102
  10. TEMAZEPAM [Concomitant]
     Active Substance: TEMAZEPAM
     Indication: Insomnia
     Dosage: 10 MG, PRN
     Route: 048
     Dates: start: 20210407
  11. MIRTAZAPINE [Concomitant]
     Active Substance: MIRTAZAPINE
     Indication: Depression
     Dosage: 15 MG, UNK
     Route: 048
     Dates: start: 20210916, end: 20211128
  12. DOCUSATE SODIUM\SENNOSIDES A AND B [Concomitant]
     Active Substance: DOCUSATE SODIUM\SENNOSIDES A AND B
     Indication: Constipation
     Dosage: 4 TABS
     Route: 048
     Dates: start: 20211007
  13. MOVICOL [Concomitant]
     Active Substance: POLYETHYLENE GLYCOL 3350\POTASSIUM CHLORIDE\SODIUM BICARBONATE\SODIUM CHLORIDE
     Indication: Constipation
     Dosage: 2 SACHET
     Route: 048
     Dates: start: 20211013
  14. ACETAMINOPHEN [Concomitant]
     Active Substance: ACETAMINOPHEN
     Indication: Pain
     Dosage: 1 G, PRN
     Route: 048
     Dates: start: 20210312
  15. METHADONE [Concomitant]
     Active Substance: METHADONE HYDROCHLORIDE
     Indication: Pain
     Dosage: 5 MG, BID (2/DAY)
     Route: 048
     Dates: start: 20211102
  16. PANTOPRAZOLE [Concomitant]
     Active Substance: PANTOPRAZOLE
     Indication: Gastrooesophageal reflux prophylaxis
     Dosage: 40 MG, DAILY
     Route: 048
     Dates: start: 20211016, end: 20211128
  17. DEXAMETHASONE [Concomitant]
     Active Substance: DEXAMETHASONE
     Indication: Pain
     Dosage: 2 MG, DAILY
     Route: 048
     Dates: start: 20211124, end: 20211128

REACTIONS (2)
  - Sacral pain [Recovered/Resolved]
  - Condition aggravated [Recovered/Resolved]

NARRATIVE: CASE EVENT DATE: 20211128
